FAERS Safety Report 12843265 (Version 1)
Quarter: 2016Q4

REPORT INFORMATION
  Report Type: Report from Study
  Country: US (occurrence: US)
  Receive Date: 20161013
  Receipt Date: 20161013
  Transmission Date: 20170207
  Serious: Yes (Hospitalization, Other)
  Sender: FDA-Public Use
  Company Number: US-GILEAD-2016-0238173

PATIENT
  Age: 52 Year
  Sex: Female

DRUGS (17)
  1. ESCITALOPRAM [Concomitant]
     Active Substance: ESCITALOPRAM OXALATE
  2. ONDANSETRON [Concomitant]
     Active Substance: ONDANSETRON
  3. ALPRAZOLAM. [Concomitant]
     Active Substance: ALPRAZOLAM
  4. BACLOFEN. [Concomitant]
     Active Substance: BACLOFEN
  5. LIDOCAINE. [Concomitant]
     Active Substance: LIDOCAINE
  6. AMBRISENTAN [Suspect]
     Active Substance: AMBRISENTAN
     Indication: PULMONARY HYPERTENSION
     Dosage: 10 MG, QD
     Route: 065
     Dates: start: 20160504
  7. AMLODIPINE [Concomitant]
     Active Substance: AMLODIPINE BESYLATE
  8. ADCIRCA [Suspect]
     Active Substance: TADALAFIL
     Indication: PULMONARY HYPERTENSION
     Dosage: 20 MG, BID
     Route: 065
     Dates: start: 20160929
  9. CHLORTHALIDON [Concomitant]
  10. NITROGLYCERIN. [Concomitant]
     Active Substance: NITROGLYCERIN
  11. PANTOPRAZOLE [Concomitant]
     Active Substance: PANTOPRAZOLE SODIUM
  12. ALBUTEROL                          /00139501/ [Concomitant]
     Active Substance: ALBUTEROL
  13. LOSARTAN POTASSIUM. [Concomitant]
     Active Substance: LOSARTAN POTASSIUM
  14. PROAIR HFA [Concomitant]
     Active Substance: ALBUTEROL SULFATE
  15. CLONIDINE. [Concomitant]
     Active Substance: CLONIDINE
  16. LYRICA [Concomitant]
     Active Substance: PREGABALIN
  17. ADVAIR HFA [Concomitant]
     Active Substance: FLUTICASONE PROPIONATE\SALMETEROL XINAFOATE

REACTIONS (1)
  - Angina pectoris [Not Recovered/Not Resolved]

NARRATIVE: CASE EVENT DATE: 20161011
